FAERS Safety Report 15587285 (Version 1)
Quarter: 2018Q4

REPORT INFORMATION
  Report Type: Spontaneous
  Country: US (occurrence: US)
  Receive Date: 20181101
  Receipt Date: 20181101
  Transmission Date: 20190205
  Serious: No
  Sender: FDA-Public Use
  Company Number: None

PATIENT
  Age: 71 Year
  Sex: Female
  Weight: 63.96 kg

DRUGS (1)
  1. FORTEO [Suspect]
     Active Substance: TERIPARATIDE
     Indication: SENILE OSTEOPOROSIS
     Dosage: ?          OTHER STRENGTH:600 MCG/2.4 ML;?
     Route: 058
     Dates: start: 201802

REACTIONS (2)
  - Shoulder operation [None]
  - Musculoskeletal pain [None]
